FAERS Safety Report 14783273 (Version 1)
Quarter: 2018Q2

REPORT INFORMATION
  Report Type: Spontaneous
  Country: FR (occurrence: FR)
  Receive Date: 20180420
  Receipt Date: 20180420
  Transmission Date: 20180711
  Serious: Yes (Hospitalization)
  Sender: FDA-Public Use
  Company Number: FR-RARE DISEASE THERAPEUTICS, INC.-1064938

PATIENT
  Age: 50 Year
  Sex: Male
  Weight: 59 kg

DRUGS (2)
  1. ESOMEPRAZOLE [Concomitant]
     Active Substance: ESOMEPRAZOLE
     Route: 048
     Dates: start: 20160328, end: 20160411
  2. CYSTADANE [Suspect]
     Active Substance: BETAINE
     Indication: WEIGHT LOSS DIET
     Route: 048
     Dates: end: 20160411

REACTIONS (4)
  - Abdominal pain upper [Recovering/Resolving]
  - Hepatocellular injury [Recovering/Resolving]
  - Off label use [Recovered/Resolved]
  - Cholestasis [Recovering/Resolving]

NARRATIVE: CASE EVENT DATE: 201508
